FAERS Safety Report 15589755 (Version 10)
Quarter: 2019Q1

REPORT INFORMATION
  Report Type: Report from Study
  Country: CA (occurrence: CA)
  Receive Date: 20181106
  Receipt Date: 20190118
  Transmission Date: 20190417
  Serious: Yes (Hospitalization, Other)
  Sender: FDA-Public Use
  Company Number: CA-BAYER-2018-190704

PATIENT
  Age: 78 Year
  Sex: Male

DRUGS (2)
  1. ADEMPAS [Suspect]
     Active Substance: RIOCIGUAT
     Indication: PULMONARY HYPERTENSION
     Dosage: 2 MG, TID
     Route: 048
  2. ADEMPAS [Suspect]
     Active Substance: RIOCIGUAT
     Indication: PULMONARY HYPERTENSION
     Dosage: 1.5 MG, TID
     Route: 048
     Dates: start: 20181003

REACTIONS (26)
  - Blood pressure systolic increased [Unknown]
  - Blood pressure increased [Unknown]
  - Dizziness [Unknown]
  - Dizziness [Unknown]
  - Heart rate decreased [Unknown]
  - Pneumonia [Not Recovered/Not Resolved]
  - Dyspnoea [Not Recovered/Not Resolved]
  - Hypertension [None]
  - Blood pressure abnormal [Recovering/Resolving]
  - Blood pressure systolic increased [Recovering/Resolving]
  - Fatigue [Unknown]
  - Asthenia [Recovered/Resolved]
  - Dizziness [Not Recovered/Not Resolved]
  - Chronic obstructive pulmonary disease [Unknown]
  - Malaise [Unknown]
  - Blood pressure systolic increased [Unknown]
  - Blood pressure systolic increased [Unknown]
  - Thrombosis [Not Recovered/Not Resolved]
  - Pulmonary oedema [Unknown]
  - Drug titration error [Unknown]
  - Blood pressure systolic increased [Recovering/Resolving]
  - Product dose omission [Recovering/Resolving]
  - Malaise [Unknown]
  - Blood pressure abnormal [Unknown]
  - Hospitalisation [None]
  - Blood pressure systolic increased [Recovering/Resolving]

NARRATIVE: CASE EVENT DATE: 20181003
